FAERS Safety Report 9355791 (Version 1)
Quarter: 2013Q2

REPORT INFORMATION
  Report Type: Spontaneous
  Country: US (occurrence: US)
  Receive Date: 20130619
  Receipt Date: 20130619
  Transmission Date: 20140414
  Serious: Yes (Other)
  Sender: FDA-Public Use
  Company Number: US-ROCHE-1233086

PATIENT
  Age: 54 Year
  Sex: Female

DRUGS (5)
  1. RITUXAN [Suspect]
     Indication: GRANULOMATOSIS WITH POLYANGIITIS
     Route: 042
     Dates: start: 201101
  2. RITUXAN [Suspect]
     Route: 065
     Dates: start: 20130531
  3. RITUXAN [Suspect]
     Route: 042
     Dates: start: 201305
  4. CYTOMEL [Concomitant]
  5. SYNTHROID [Concomitant]

REACTIONS (20)
  - Throat tightness [Recovering/Resolving]
  - Bradycardia [Recovering/Resolving]
  - Dysphonia [Recovering/Resolving]
  - Heart rate decreased [Recovered/Resolved]
  - Throat tightness [Unknown]
  - Infusion site discomfort [Unknown]
  - Fatigue [Recovering/Resolving]
  - Chest pain [Recovering/Resolving]
  - Hyperhidrosis [Recovering/Resolving]
  - Listless [Recovering/Resolving]
  - Heart rate decreased [Recovered/Resolved]
  - Dysphonia [Recovering/Resolving]
  - Cough [Recovering/Resolving]
  - Nausea [Recovering/Resolving]
  - Palpitations [Recovering/Resolving]
  - Discomfort [Recovering/Resolving]
  - Aphonia [Recovering/Resolving]
  - Cold sweat [Recovering/Resolving]
  - Granulomatosis with polyangiitis [Not Recovered/Not Resolved]
  - Infusion related reaction [Recovered/Resolved]
